FAERS Safety Report 7656534-X (Version None)
Quarter: 2011Q3

REPORT INFORMATION
  Report Type: 
  Country: None (occurrence: None)
  Receive Date: 20110804
  Receipt Date: 20101108
  Transmission Date: 20111222
  Serious: No
  Sender: FDA-Public Use
  Company Number: US-BAUSCH-2010BL006422

PATIENT
  Age: 14 Year
  Sex: Female

DRUGS (2)
  1. OPCON-A [Suspect]
     Indication: SEASONAL ALLERGY
     Route: 047
     Dates: start: 20100901
  2. YAZ [Concomitant]
     Indication: PRODUCT USED FOR UNKNOWN INDICATION
     Route: 048

REACTIONS (1)
  - DRUG INEFFECTIVE [None]
